FAERS Safety Report 4469731-1 (Version None)
Quarter: 2004Q4

REPORT INFORMATION
  Report Type: 
  Country: None (occurrence: None)
  Receive Date: 20041008
  Receipt Date: 20040625
  Transmission Date: 20050328
  Serious: Yes (Hospitalization)
  Sender: FDA-Public Use
  Company Number: JP-JNJFOC-20041001961

PATIENT
  Age: 80 Year
  Sex: Female

DRUGS (8)
  1. DUROTEP [Suspect]
     Route: 062
  2. DUROTEP [Suspect]
     Route: 062
  3. DUROTEP [Suspect]
     Indication: CANCER PAIN
     Route: 062
  4. ETIZOLAM [Concomitant]
     Route: 049
  5. BROTIZOLAM [Concomitant]
     Route: 049
  6. SCOPOLAMINE BUTYLBROMIDE [Concomitant]
     Route: 049
  7. MAGNESIUM OXIDE [Concomitant]
     Route: 049
  8. SENOSIDE [Concomitant]
     Route: 049

REACTIONS (3)
  - APPLICATION SITE ERYTHEMA [None]
  - APPLICATION SITE PRURITUS [None]
  - PAIN EXACERBATED [None]
